FAERS Safety Report 6804845-X (Version None)
Quarter: 2010Q2

REPORT INFORMATION
  Report Type: 
  Country: None (occurrence: None)
  Receive Date: 20100628
  Receipt Date: 20070612
  Transmission Date: 20101027
  Serious: Yes (Other)
  Sender: FDA-Public Use
  Company Number: US-PFIZER INC-2007047825

PATIENT
  Sex: Male

DRUGS (1)
  1. GEODON [Suspect]
     Indication: BIPOLAR DISORDER

REACTIONS (9)
  - AGITATION [None]
  - ANXIETY [None]
  - DRUG DOSE OMISSION [None]
  - FEAR [None]
  - HEADACHE [None]
  - MANIA [None]
  - SOMNOLENCE [None]
  - TACHYPHRENIA [None]
  - WITHDRAWAL SYNDROME [None]
